FAERS Safety Report 5649505-6 (Version None)
Quarter: 2008Q1

REPORT INFORMATION
  Report Type: 
  Country: None (occurrence: None)
  Receive Date: 20080304
  Receipt Date: 20080221
  Transmission Date: 20080703
  Serious: Yes (Other)
  Sender: FDA-Public Use
  Company Number: US-PFIZER INC-2008016859

PATIENT
  Sex: Female
  Weight: 70.909 kg

DRUGS (8)
  1. ZOLOFT [Suspect]
     Indication: DEPRESSION
     Route: 048
  2. LYRICA [Concomitant]
  3. KLONOPIN [Concomitant]
  4. AMITRIPTYLINE HCL [Concomitant]
  5. HYDROCODONE BITARTRATE [Concomitant]
  6. QUINAPRIL HCL [Concomitant]
  7. PREVACID [Concomitant]
  8. TYLENOL (CAPLET) [Concomitant]

REACTIONS (12)
  - ABDOMINAL DISTENSION [None]
  - ABDOMINAL PAIN UPPER [None]
  - ARTHRALGIA [None]
  - BALANCE DISORDER [None]
  - DIARRHOEA [None]
  - OEDEMA [None]
  - OEDEMA PERIPHERAL [None]
  - PAIN IN EXTREMITY [None]
  - PSYCHIATRIC SYMPTOM [None]
  - PSYCHOMOTOR HYPERACTIVITY [None]
  - SPINAL COLUMN STENOSIS [None]
  - TREMOR [None]
